FAERS Safety Report 9421737 (Version 1)
Quarter: 2013Q3

REPORT INFORMATION
  Report Type: Spontaneous
  Country: US (occurrence: US)
  Receive Date: 20130724
  Receipt Date: 20130724
  Transmission Date: 20140515
  Serious: No
  Sender: FDA-Public Use
  Company Number: US-BAYER-2013-089262

PATIENT
  Age: 85 Year
  Sex: Female
  Weight: 58.5 kg

DRUGS (2)
  1. ALEVE LIQUID GELS [Suspect]
     Indication: ARTHRITIS
     Dosage: 1 DF, QD DAILY
     Route: 048
  2. ALEVE GELCAPS [Suspect]
     Dosage: 1 DF, BID

REACTIONS (3)
  - Nervousness [Unknown]
  - Drug ineffective [None]
  - Incorrect drug administration duration [None]
